FAERS Safety Report 7700651-2 (Version None)
Quarter: 2011Q3

REPORT INFORMATION
  Report Type: 
  Country: None (occurrence: None)
  Receive Date: 20110822
  Receipt Date: 20110822
  Transmission Date: 20111222
  Serious: Yes (Other)
  Sender: FDA-Public Use
  Company Number: None

PATIENT
  Age: 40 Year
  Sex: Female
  Weight: 63.502 kg

DRUGS (1)
  1. SCOPOLAMINE [Suspect]
     Indication: PROPHYLAXIS OF NAUSEA AND VOMITING
     Dates: start: 20110817, end: 20110819

REACTIONS (6)
  - SOMNOLENCE [None]
  - VISION BLURRED [None]
  - PUPILLARY REFLEX IMPAIRED [None]
  - FATIGUE [None]
  - DRY MOUTH [None]
  - HEADACHE [None]
